FAERS Safety Report 9385727 (Version 1)
Quarter: 2013Q3

REPORT INFORMATION
  Report Type: Spontaneous
  Country: US (occurrence: US)
  Receive Date: 20130705
  Receipt Date: 20130705
  Transmission Date: 20140515
  Serious: Yes (Other)
  Sender: FDA-Public Use
  Company Number: US-BRISTOL-MYERS SQUIBB COMPANY-19064393

PATIENT
  Age: 66 Year
  Sex: Male
  Weight: 95.24 kg

DRUGS (6)
  1. ONGLYZA TABS [Suspect]
     Dosage: STARTED A DAY TWO AND A HALF TO 3 YEARS AGO.
  2. METFORMIN HCL [Suspect]
  3. COREG [Concomitant]
  4. ZETIA [Concomitant]
  5. OMEPRAZOLE [Concomitant]
  6. FLUCONAZOLE [Concomitant]

REACTIONS (2)
  - Pulmonary fibrosis [Unknown]
  - Dyspepsia [Unknown]
